FAERS Safety Report 6902553-8 (Version None)
Quarter: 2010Q3

REPORT INFORMATION
  Report Type: 
  Country: None (occurrence: None)
  Receive Date: 20100730
  Receipt Date: 20100714
  Transmission Date: 20110219
  Serious: Yes (Hospitalization, Other)
  Sender: FDA-Public Use
  Company Number: 2009S1003775

PATIENT
  Age: 64 Year
  Sex: Female
  Weight: 57.1532 kg

DRUGS (8)
  1. PHOSPHOSODA FLAVOR NOT SPECIFIED [Suspect]
     Indication: COLONOSCOPY
     Dosage: 135. ML; TOTAL; PO
     Route: 048
     Dates: start: 20030825, end: 20030826
  2. XANAX [Concomitant]
  3. ZELNORM [Concomitant]
  4. BROMFED [Concomitant]
  5. DIOVAN HCT [Concomitant]
  6. FLONASE [Concomitant]
  7. ZYPREXA [Concomitant]
  8. COLONCLENZ [Concomitant]

REACTIONS (8)
  - ABDOMINAL PAIN [None]
  - BLADDER DYSFUNCTION [None]
  - HYPOVOLAEMIA [None]
  - INCORRECT DOSE ADMINISTERED [None]
  - OBSTRUCTION [None]
  - PYREXIA [None]
  - RENAL FAILURE ACUTE [None]
  - RENAL TUBULAR NECROSIS [None]
